FAERS Safety Report 7562308-0 (Version None)
Quarter: 2011Q2

REPORT INFORMATION
  Report Type: 
  Country: None (occurrence: None)
  Receive Date: 20110614
  Receipt Date: 20110601
  Transmission Date: 20111010
  Serious: Yes (Death, Hospitalization)
  Sender: FDA-Public Use
  Company Number: 2009AL003650

PATIENT
  Age: 19 Year
  Sex: Female

DRUGS (1)
  1. PROPYLTHIOURACIL [Suspect]
     Indication: BASEDOW'S DISEASE
     Dosage: 50 MG, OD, PO
     Route: 048

REACTIONS (14)
  - ACUTE HEPATIC FAILURE [None]
  - COAGULOPATHY [None]
  - HEPATIC NECROSIS [None]
  - BRAIN HERNIATION [None]
  - LIVER DISORDER [None]
  - ASTERIXIS [None]
  - JAUNDICE [None]
  - BLOOD ALBUMIN DECREASED [None]
  - ABDOMINAL PAIN [None]
  - HEPATIC FIBROSIS [None]
  - HEPATITIS ACUTE [None]
  - NAUSEA [None]
  - VOMITING [None]
  - ENCEPHALOPATHY [None]
